FAERS Safety Report 6034287-9 (Version None)
Quarter: 2009Q1

REPORT INFORMATION
  Report Type: 
  Country: None (occurrence: None)
  Receive Date: 20090112
  Receipt Date: 20090105
  Transmission Date: 20090719
  Serious: Yes (Other)
  Sender: FDA-Public Use
  Company Number: US-PFIZER INC-2009151481

PATIENT
  Sex: Male
  Weight: 78.005 kg

DRUGS (2)
  1. LIPITOR [Suspect]
     Indication: BLOOD CHOLESTEROL
     Route: 048
  2. ATENOLOL [Concomitant]
     Dosage: UNK

REACTIONS (2)
  - MOBILITY DECREASED [None]
  - MYALGIA [None]
